FAERS Safety Report 5960864-7 (Version None)
Quarter: 2008Q4

REPORT INFORMATION
  Report Type: 
  Country: None (occurrence: None)
  Receive Date: 20081118
  Receipt Date: 20081103
  Transmission Date: 20090506
  Serious: Yes (Death, Congenital Anomaly)
  Sender: FDA-Public Use
  Company Number: 2006S1000018

PATIENT

DRUGS (4)
  1. SORIATANE [Suspect]
     Dosage: TRPL
     Route: 064
  2. BETNEVAL (BETAMETHASONE VALERATE) /00008503/ [Suspect]
     Dosage: TRPL
     Route: 064
  3. DESONIDE [Suspect]
     Dosage: TRPL
     Route: 064
  4. DERMOVAL /00337102/ (CLOBETASOL PROPIONATE) [Suspect]
     Dosage: TRPL
     Route: 064

REACTIONS (3)
  - ABORTION INDUCED [None]
  - HEART DISEASE CONGENITAL [None]
  - MATERNAL DRUGS AFFECTING FOETUS [None]
